FAERS Safety Report 10678547 (Version 1)
Quarter: 2014Q4

REPORT INFORMATION
  Report Type: Spontaneous
  Country: US (occurrence: US)
  Receive Date: 20141229
  Receipt Date: 20141229
  Transmission Date: 20150529
  Serious: Yes (Other)
  Sender: FDA-Public Use
  Company Number: US-PFIZER INC-2014354495

PATIENT
  Sex: Male

DRUGS (3)
  1. LYRICA [Suspect]
     Active Substance: PREGABALIN
     Dosage: UNK
  2. OXYCODONE [Suspect]
     Active Substance: OXYCODONE
     Indication: PAIN
     Dosage: 20 MG TABLETS COULD TAKE 4 TIMES A DAY AS NEEDED
  3. OXYCODONE [Suspect]
     Active Substance: OXYCODONE
     Indication: ARTHROPATHY

REACTIONS (2)
  - Pain [Unknown]
  - Diabetes mellitus [Unknown]
